FAERS Safety Report 6850324-3 (Version None)
Quarter: 2010Q3

REPORT INFORMATION
  Report Type: 
  Country: None (occurrence: None)
  Receive Date: 20100716
  Receipt Date: 20071011
  Transmission Date: 20110219
  Serious: No
  Sender: FDA-Public Use
  Company Number: US-PFIZER INC-2007086589

PATIENT
  Sex: Female
  Weight: 61.3 kg

DRUGS (4)
  1. CHANTIX [Suspect]
     Indication: SMOKING CESSATION THERAPY
     Dates: start: 20071009
  2. PREMARIN [Concomitant]
  3. MONTELUKAST SODIUM [Concomitant]
  4. BIAXIN [Concomitant]
     Indication: SINUSITIS
     Dates: start: 20071002

REACTIONS (1)
  - HEADACHE [None]
